FAERS Safety Report 4788464-5 (Version None)
Quarter: 2005Q4

REPORT INFORMATION
  Report Type: 
  Country: None (occurrence: None)
  Receive Date: 20051005
  Receipt Date: 20051005
  Transmission Date: 20060501
  Serious: No
  Sender: FDA-Public Use
  Company Number: None

PATIENT
  Age: 52 Year
  Sex: Male
  Weight: 81 kg

DRUGS (10)
  1. AMPHOTERICIN B [Suspect]
     Indication: FUNGAL INFECTION
     Dosage: 400 MG, DAILY, IV
     Route: 042
     Dates: start: 20040926, end: 20040927
  2. ACETAMINOPHEN [Concomitant]
  3. GUAIFENESIN [Concomitant]
  4. LACTULOSE [Concomitant]
  5. LEVOFLOXACIN [Concomitant]
  6. ALUMINUM HYDROXIDE AND MAGNESIUM TRISILICATE [Concomitant]
  7. ONDANSETRON [Concomitant]
  8. OXYCODONE HCL [Concomitant]
  9. SENNA [Concomitant]
  10. TRETINOIN [Concomitant]

REACTIONS (3)
  - BLOOD CREATININE INCREASED [None]
  - HYPOKALAEMIA [None]
  - HYPOMAGNESAEMIA [None]
